FAERS Safety Report 8523141-6 (Version None)
Quarter: 2012Q3

REPORT INFORMATION
  Report Type: 
  Country: None (occurrence: None)
  Receive Date: 20120713
  Receipt Date: 20120713
  Transmission Date: 20120928
  Serious: Yes (Hospitalization)
  Sender: FDA-Public Use
  Company Number: None

PATIENT
  Age: 60 Year
  Sex: Female
  Weight: 65.7716 kg

DRUGS (9)
  1. CLOPIDOGREL BISULFATE [Suspect]
     Indication: CORONARY ARTERY DISEASE
     Dosage: 75 MG DAILY PO
     Route: 048
     Dates: start: 20120529, end: 20120606
  2. CLOPIDOGREL BISULFATE [Suspect]
     Indication: CORONARY ARTERIAL STENT INSERTION
     Dosage: 75 MG DAILY PO
     Route: 048
     Dates: start: 20120529, end: 20120606
  3. LEVOTHYROXINE SODIUM [Concomitant]
  4. PIRIN [Concomitant]
  5. METOPROLOL TARTRATE [Concomitant]
  6. . [Concomitant]
  7. PEPCID [Concomitant]
  8. ATORVASTATIN [Concomitant]
  9. ENALAPRIL MALEATE [Concomitant]

REACTIONS (3)
  - PRODUCT SUBSTITUTION ISSUE [None]
  - THROMBOSIS IN DEVICE [None]
  - ACUTE MYOCARDIAL INFARCTION [None]
